FAERS Safety Report 8494218-9 (Version None)
Quarter: 2012Q3

REPORT INFORMATION
  Report Type: 
  Country: None (occurrence: None)
  Receive Date: 20120709
  Receipt Date: 20120705
  Transmission Date: 20120928
  Serious: Yes (Death, Hospitalization)
  Sender: FDA-Public Use
  Company Number: PHHY2011CR90533

PATIENT
  Sex: Female

DRUGS (11)
  1. ALPRAZOLAM [Concomitant]
     Dosage: 1 MG, UNK
  2. ATENOLOL [Concomitant]
     Dosage: HALF TABLET PER DAY
  3. LOVASTATIN [Concomitant]
     Dosage: 20 MG, UNK
  4. HYPERLIPEN [Concomitant]
     Dosage: 1 DF TWICE PER MONTH
     Route: 048
  5. DIOVAN [Suspect]
     Indication: HYPERTENSION
     Dosage: 160 MG PER DAY
     Route: 048
  6. VASTAREL [Concomitant]
     Dosage: 1 TABLET PER DAY
  7. ALLOPURINOL [Concomitant]
     Dosage: 1 TABLET PER DAY
  8. FUROSEMIDE [Concomitant]
     Dosage: 40 MG PER DAY
  9. ISOSORBIDE [Concomitant]
     Dosage: 0.5 DF, BID
  10. LEVOTHYROXINE SODIUM [Concomitant]
     Dosage: 50 UG PER DAY
  11. OMEPRAZOLE [Concomitant]
     Dosage: 10 MG FASTING PER DAY

REACTIONS (5)
  - SEPSIS [None]
  - PNEUMONIA [None]
  - BRONCHOPNEUMONIA [None]
  - DYSPNOEA [None]
  - SEPTIC SHOCK [None]
